FAERS Safety Report 7151151-2 (Version None)
Quarter: 2010Q4

REPORT INFORMATION
  Report Type: 
  Country: None (occurrence: None)
  Receive Date: 20101210
  Receipt Date: 20101206
  Transmission Date: 20110411
  Serious: Yes (Other)
  Sender: FDA-Public Use
  Company Number: GB-BRISTOL-MYERS SQUIBB COMPANY-15227309

PATIENT
  Age: 72 Year

DRUGS (3)
  1. CETUXIMAB [Suspect]
     Indication: OESOPHAGEAL CARCINOMA
     Dosage: LAST INF:15FEB2010
     Route: 042
     Dates: start: 20091215
  2. CISPLATIN [Suspect]
     Indication: OESOPHAGEAL CARCINOMA
     Dosage: LAST INF:15FEB2010
     Route: 042
     Dates: start: 20091215
  3. CAPECITABINE [Suspect]
     Indication: OESOPHAGEAL CARCINOMA
     Dosage: TAB LAST ADMINSTRATION:22FEB2010
     Route: 048
     Dates: start: 20091215

REACTIONS (2)
  - DYSPNOEA [None]
  - PULMONARY EMBOLISM [None]
